FAERS Safety Report 8659919 (Version 6)
Quarter: 2012Q4

REPORT INFORMATION
  Report Type: 
  Country: GB (occurrence: GB)
  Receive Date: 20120711
  Receipt Date: 20120904
  Transmission Date: 20130627
  Serious: Yes (Other)
  Sender: FDA-Public Use
  Company Number: PHFR2012GB003652

PATIENT
  Age: 66 Year
  Sex: Male

DRUGS (4)
  1. CLOZARIL [Suspect]
     Indication: SCHIZOPHRENIA
     Route: 048
     Dates: start: 20010701
  2. CLOZARIL [Suspect]
     Dosage: 500 mg, daily
     Route: 048
     Dates: start: 2004
  3. DULOXETINE [Concomitant]
     Indication: DEPRESSION
     Dosage: 60 mg, daily
     Route: 048
     Dates: start: 2010
  4. EPILIM CHRONO [Concomitant]
     Indication: AFFECTIVE DISORDER
     Dosage: 600 mg, UNK
     Route: 048
     Dates: start: 20120703

REACTIONS (9)
  - Fall [Recovered/Resolved]
  - Dehydration [Recovered/Resolved]
  - Fluid intake reduced [Recovered/Resolved]
  - Circulatory collapse [Recovered/Resolved]
  - Constipation [Recovered/Resolved]
  - White blood cell count increased [Recovered/Resolved]
  - Abdominal discomfort [Recovered/Resolved]
  - Neutrophilia [Not Recovered/Not Resolved]
  - Differential white blood cell count abnormal [Not Recovered/Not Resolved]
